FAERS Safety Report 7955084-0 (Version None)
Quarter: 2011Q4

REPORT INFORMATION
  Report Type: 
  Country: None (occurrence: None)
  Receive Date: 20111202
  Receipt Date: 20111125
  Transmission Date: 20120403
  Serious: Yes (Other)
  Sender: FDA-Public Use
  Company Number: ES-BAYER-2011-089182

PATIENT
  Age: 36 Year
  Sex: Female
  Weight: 55 kg

DRUGS (5)
  1. INTERFERON BETA-1B [Suspect]
     Indication: MULTIPLE SCLEROSIS
     Dosage: 220 ?G, QOD
     Route: 058
     Dates: start: 20101112, end: 20101220
  2. METHYLPREDNISOLONE [Concomitant]
     Indication: MULTIPLE SCLEROSIS
     Dosage: 1 G, BID, 2 COURSES
     Route: 065
  3. INTERFERON BETA-1B [Suspect]
     Dosage: PROGRESSIVE DOSE INCREASE
     Route: 058
     Dates: start: 20100101
  4. INTERFERON BETA-1B [Suspect]
     Dosage: 220 MG, QOD
     Route: 058
  5. METHYLPREDNISOLONE [Concomitant]
     Dosage: UNK
     Route: 065
     Dates: start: 20101001

REACTIONS (5)
  - ABDOMINAL PAIN [None]
  - DYSPEPSIA [None]
  - NAUSEA [None]
  - DIARRHOEA [None]
  - COELIAC DISEASE [None]
